FAERS Safety Report 8718448 (Version 2)
Quarter: 2012Q4

REPORT INFORMATION
  Report Type: Report from Study
  Country: US (occurrence: US)
  Receive Date: 20120810
  Receipt Date: 20121112
  Transmission Date: 20130627
  Serious: No
  Sender: FDA-Public Use
  Company Number: US-ABBOTT-12P-163-0955706-00

PATIENT
  Age: 34 Year
  Sex: Female

DRUGS (10)
  1. NORVIR TABLETS [Suspect]
     Indication: ANTIRETROVIRAL THERAPY
     Dosage: 100 mg daily
     Route: 048
  2. REYATAZ [Suspect]
     Indication: ANTIRETROVIRAL THERAPY
     Dosage: 300 mg daily
     Route: 048
  3. TRUVADA [Suspect]
     Indication: ANTIRETROVIRAL THERAPY
     Route: 048
     Dates: end: 20111110
  4. COMBIVIR [Suspect]
     Indication: ANTIRETROVIRAL THERAPY
     Dosage: 2 tablets daily
     Route: 048
     Dates: start: 20111110, end: 20120607
  5. RETROVIR [Suspect]
     Indication: ANTIRETROVIRAL THERAPY
     Route: 042
     Dates: start: 20120525, end: 20120525
  6. RETROVIR [Suspect]
     Route: 042
     Dates: start: 20120525, end: 20120525
  7. METRONIDAZOLE [Concomitant]
     Indication: PRODUCT USED FOR UNKNOWN INDICATION
  8. FLUCONAZOL [Concomitant]
     Indication: PRODUCT USED FOR UNKNOWN INDICATION
  9. TERAZOL 7 [Concomitant]
     Indication: PRODUCT USED FOR UNKNOWN INDICATION
  10. TRICHOLOROACETRIC ACID [Concomitant]
     Indication: PRODUCT USED FOR UNKNOWN INDICATION

REACTIONS (3)
  - Vulvovaginal mycotic infection [Unknown]
  - Vulvovaginitis trichomonal [Unknown]
  - Oligohydramnios [Unknown]
